FAERS Safety Report 7056318-X (Version None)
Quarter: 2010Q4

REPORT INFORMATION
  Report Type: 
  Country: None (occurrence: None)
  Receive Date: 20101021
  Receipt Date: 20101018
  Transmission Date: 20110411
  Serious: Yes (Hospitalization)
  Sender: FDA-Public Use
  Company Number: CH-WYE-G06817610

PATIENT
  Age: 45 Year
  Sex: Female

DRUGS (17)
  1. VENLAFAXINE HYDROCHLORIDE [Suspect]
     Route: 048
     Dates: start: 20100512, end: 20100512
  2. VENLAFAXINE HYDROCHLORIDE [Interacting]
     Route: 048
     Dates: start: 20100513, end: 20100516
  3. VENLAFAXINE HYDROCHLORIDE [Interacting]
     Route: 048
     Dates: start: 20100517, end: 20100520
  4. VENLAFAXINE HYDROCHLORIDE [Interacting]
     Route: 048
     Dates: start: 20100521, end: 20100523
  5. VENLAFAXINE HYDROCHLORIDE [Interacting]
     Route: 048
     Dates: start: 20100524, end: 20100626
  6. VENLAFAXINE HYDROCHLORIDE [Interacting]
     Route: 048
     Dates: start: 20100101
  7. TEMESTA [Interacting]
     Dosage: 2-7 MG AS NECESSARY
     Route: 048
     Dates: start: 20100122, end: 20100627
  8. ENTUMIN [Interacting]
     Dosage: 40-120 MG DAILY
     Route: 048
     Dates: start: 20090113, end: 20100626
  9. PROMAZINE HYDROCHLORIDE [Concomitant]
     Dosage: 50 MG AS NECESSARY, RARELY USED
     Route: 048
     Dates: start: 20100216, end: 20100627
  10. NOZINAN [Interacting]
     Dosage: 25-75 MG DAILY
     Route: 048
     Dates: start: 20100313, end: 20100627
  11. REMERON [Interacting]
     Route: 048
     Dates: start: 20070727, end: 20100122
  12. REMERON [Interacting]
     Route: 048
     Dates: start: 20100123, end: 20100626
  13. TRAZODONE HCL [Interacting]
     Route: 048
     Dates: start: 20090113, end: 20100510
  14. TRAZODONE HCL [Interacting]
     Route: 048
     Dates: start: 20100511, end: 20100512
  15. TRAZODONE HCL [Interacting]
     Route: 048
     Dates: start: 20100513, end: 20100626
  16. TEMESTA [Interacting]
     Route: 048
     Dates: start: 20100504, end: 20100626
  17. LAMOTRIGINE [Concomitant]
     Route: 048
     Dates: start: 20100216, end: 20100627

REACTIONS (5)
  - ANTICHOLINERGIC SYNDROME [None]
  - ANTIDEPRESSANT DRUG LEVEL ABOVE THERAPEUTIC [None]
  - DRUG INTERACTION [None]
  - SUBILEUS [None]
  - URINARY RETENTION [None]
